FAERS Safety Report 23657601 (Version 1)
Quarter: 2024Q1

REPORT INFORMATION
  Report Type: Spontaneous
  Country: PT (occurrence: PT)
  Receive Date: 20240321
  Receipt Date: 20240321
  Transmission Date: 20240410
  Serious: Yes (Death, Hospitalization, Other)
  Sender: FDA-Public Use
  Company Number: PT-B.Braun Medical Inc.-2154584

PATIENT
  Age: 51 Year
  Sex: Female

DRUGS (8)
  1. CEFTRIAXONE SODIUM [Suspect]
     Active Substance: CEFTRIAXONE SODIUM
  2. PREDNISOLONE [Suspect]
     Active Substance: PREDNISOLONE
  3. AZATHIOPRINE [Suspect]
     Active Substance: AZATHIOPRINE
  4. AZATHIOPRINE [Concomitant]
     Active Substance: AZATHIOPRINE
  5. ACETAMINOPHEN [Suspect]
     Active Substance: ACETAMINOPHEN
  6. PREDNISOLONE [Suspect]
     Active Substance: PREDNISOLONE
  7. MYCOPHENOLATE MOFETIL [Suspect]
     Active Substance: MYCOPHENOLATE MOFETIL
  8. TACROLIMUS [Suspect]
     Active Substance: TACROLIMUS

REACTIONS (14)
  - Septic shock [Fatal]
  - Metabolic acidosis [Fatal]
  - Tumour lysis syndrome [Fatal]
  - Ascites [Fatal]
  - Condition aggravated [Fatal]
  - Pleural effusion [Fatal]
  - Acute kidney injury [Fatal]
  - Back pain [Fatal]
  - Pyelonephritis [Fatal]
  - Pancytopenia [Fatal]
  - Spinal cord disorder [Fatal]
  - Hepatosplenic T-cell lymphoma [Fatal]
  - Nosocomial infection [Fatal]
  - Metastases to spinal cord [Fatal]
